FAERS Safety Report 7723365-1 (Version None)
Quarter: 2011Q3

REPORT INFORMATION
  Report Type: 
  Country: None (occurrence: None)
  Receive Date: 20110901
  Receipt Date: 20110823
  Transmission Date: 20111222
  Serious: Yes (Life-Threatening, Hospitalization)
  Sender: FDA-Public Use
  Company Number: US-CELGENEUS-163-21880-11073022

PATIENT
  Sex: Male
  Weight: 49.94 kg

DRUGS (18)
  1. REVLIMID [Suspect]
     Indication: MULTIPLE MYELOMA
     Dosage: 25 MILLIGRAM
     Route: 048
     Dates: start: 20110629, end: 20110718
  2. ASPIRIN [Concomitant]
     Dosage: 81 MILLIGRAM
     Route: 048
     Dates: start: 20110308
  3. CELLCEPT [Concomitant]
     Dosage: 250 MILLIGRAM
     Route: 048
     Dates: start: 20110308
  4. ETHAMBUTOL HYDROCHLORIDE [Concomitant]
     Dosage: 400 MILLIGRAM
     Route: 048
     Dates: start: 20110308
  5. DEXAMETHASONE [Concomitant]
     Dosage: 4 MILLIGRAM
     Route: 048
     Dates: start: 20110330
  6. MINOCYCLINE HCL [Concomitant]
     Dosage: 50 MILLIGRAM
     Route: 048
     Dates: start: 20110308
  7. TOPROL-XL [Concomitant]
     Dosage: 25 MILLIGRAM
     Route: 048
     Dates: start: 20110308
  8. VALCYTE [Concomitant]
     Dosage: 450 MILLIGRAM
     Route: 048
     Dates: start: 20110308
  9. CALCIUM + D + MINERALS [Concomitant]
     Dosage: 600 MILLIGRAM
     Route: 048
     Dates: start: 20110308
  10. PREDNISONE [Concomitant]
     Dosage: 5 MILLIGRAM
     Route: 048
     Dates: start: 20110308
  11. PROGRAF [Concomitant]
     Dosage: 4 MILLIGRAM
     Route: 048
     Dates: start: 20110321
  12. SULFAMETHOXAZOLE AND TRIMETHOPRIM [Concomitant]
     Dosage: 1 TABLET
     Route: 048
     Dates: start: 20110308
  13. NEXIUM [Concomitant]
     Dosage: 40 MILLIGRAM
     Route: 048
     Dates: start: 20110308
  14. LEVAQUIN [Concomitant]
     Dosage: 500 MILLIGRAM
     Route: 048
     Dates: start: 20110715
  15. MULTI-VITAMINS [Concomitant]
     Dosage: 5 MILLILITER
     Route: 048
     Dates: start: 20110729
  16. PROGRAF [Concomitant]
     Dosage: 1 MILLIGRAM
     Route: 048
     Dates: start: 20110729
  17. ZITHROMAX [Concomitant]
     Dosage: 500 MILLIGRAM
     Route: 048
     Dates: start: 20110308
  18. NYSTATIN [Concomitant]
     Dosage: 5 MILLILITER
     Route: 048
     Dates: start: 20110620

REACTIONS (1)
  - BRONCHITIS [None]
